FAERS Safety Report 4781320-8 (Version None)
Quarter: 2005Q3

REPORT INFORMATION
  Report Type: 
  Country: None (occurrence: None)
  Receive Date: 20050914
  Receipt Date: 20050627
  Transmission Date: 20060218
  Serious: No
  Sender: FDA-Public Use
  Company Number: IND-AE-05-SAN-035

PATIENT
  Age: 66 Year
  Sex: Female
  Weight: 124.7392 kg

DRUGS (4)
  1. SANCTURA [Suspect]
     Indication: HYPERTONIC BLADDER
     Dosage: 20MG QD; ORAL
     Route: 048
     Dates: start: 20050504, end: 20050601
  2. HYDROCHLOROTHIAZIDE [Concomitant]
  3. PROZAC [Concomitant]
  4. MOBIC [Concomitant]

REACTIONS (2)
  - HEADACHE [None]
  - LETHARGY [None]
